FAERS Safety Report 16438806 (Version 1)
Quarter: 2019Q2

REPORT INFORMATION
  Report Type: Report from Study
  Country: CO (occurrence: CO)
  Receive Date: 20190617
  Receipt Date: 20190617
  Transmission Date: 20190711
  Serious: Yes (Disabling, Other)
  Sender: FDA-Public Use
  Company Number: CO-TOLMAR, INC.-2019CO006078

PATIENT

DRUGS (1)
  1. ELIGARD [Suspect]
     Active Substance: LEUPROLIDE ACETATE
     Indication: PROSTATE CANCER
     Dosage: 45 MG, UNK
     Route: 058
     Dates: start: 20151201, end: 20181127

REACTIONS (2)
  - Bone cancer metastatic [Not Recovered/Not Resolved]
  - Limb immobilisation [Not Recovered/Not Resolved]

NARRATIVE: CASE EVENT DATE: 20180601
